FAERS Safety Report 14695122 (Version 1)
Quarter: 2018Q1

REPORT INFORMATION
  Report Type: Spontaneous
  Country: FR (occurrence: FR)
  Receive Date: 20180329
  Receipt Date: 20180329
  Transmission Date: 20180509
  Serious: Yes (Hospitalization)
  Sender: FDA-Public Use
  Company Number: FR-ETHYPHARM USA CORP.-2017-EY-BU-FR-00509

PATIENT
  Age: 46 Year
  Sex: Female

DRUGS (2)
  1. BUPRENORPHINE. [Suspect]
     Active Substance: BUPRENORPHINE
     Indication: DRUG USE DISORDER
     Dosage: UNK
     Route: 065
  2. NALMEFENE [Interacting]
     Active Substance: NALMEFENE
     Indication: ALCOHOL WITHDRAWAL SYNDROME
     Dosage: 18 MG TOTAL
     Route: 065

REACTIONS (8)
  - Nausea [Recovered/Resolved]
  - Flushing [Recovered/Resolved]
  - Drug interaction [Recovered/Resolved]
  - Muscle spasms [Recovered/Resolved]
  - Psychomotor hyperactivity [Recovered/Resolved]
  - Drug withdrawal syndrome [Recovered/Resolved]
  - Myalgia [Recovered/Resolved]
  - Hyperhidrosis [Recovered/Resolved]
